FAERS Safety Report 24777199 (Version 2)
Quarter: 2025Q1

REPORT INFORMATION
  Report Type: Report from Study
  Country: US (occurrence: US)
  Receive Date: 20241226
  Receipt Date: 20250103
  Transmission Date: 20250409
  Serious: Yes (Hospitalization)
  Sender: BAYER HEALTHCARE PHARMACEUTICALS INC.
  Company Number: US-BAYER-2024A178151

PATIENT
  Age: 68 Year
  Sex: Female

DRUGS (2)
  1. STIVARGA [Suspect]
     Active Substance: REGORAFENIB MONOHYDRATE
     Indication: Colorectal cancer metastatic
     Dosage: 160 MG, QD (FROM DAY 1 TO 21 IN A 28-DAY CYCLE)
     Route: 048
     Dates: start: 20241211, end: 202412
  2. STIVARGA [Suspect]
     Active Substance: REGORAFENIB MONOHYDRATE
     Indication: Colorectal cancer metastatic
     Dosage: 80 MG, QD, FROM DAY 1 TO 21 IN A 28-DAY CYCLE.
     Dates: start: 202412, end: 20241213

REACTIONS (5)
  - Dyspnoea [Unknown]
  - Lung disorder [Recovering/Resolving]
  - Fatigue [Not Recovered/Not Resolved]
  - Anaemia [Unknown]
  - Chest pain [Unknown]
